FAERS Safety Report 9185966 (Version 2)
Quarter: 2013Q2

REPORT INFORMATION
  Report Type: Spontaneous
  Country: BR (occurrence: BR)
  Receive Date: 20130325
  Receipt Date: 20130419
  Transmission Date: 20140414
  Serious: Yes (Disabling, Other)
  Sender: FDA-Public Use
  Company Number: PHHY2013BR027393

PATIENT
  Age: 76 Year
  Sex: Female

DRUGS (8)
  1. BUFFERIN [Suspect]
     Indication: CARDIAC MURMUR
     Dosage: 1 DF, AT MORNING
     Route: 048
  2. BUFFERIN [Suspect]
     Indication: ATRIOVENTRICULAR BLOCK
  3. BUFFERIN [Suspect]
     Indication: OFF LABEL USE
  4. SERTRALINE [Concomitant]
     Indication: ANXIETY
     Dosage: 1 DF, AT MORNING
     Route: 048
  5. LOSARTAN [Concomitant]
     Indication: HYPERTENSION
     Dosage: 1 DF, ONE AT MORNING AND ONE AT NIGHT
     Route: 048
  6. PROPRANOLOL [Concomitant]
     Indication: HYPERTENSION
     Dosage: 1 DF, ONE AT MORNING AND ONE AT NIGHT
     Route: 048
  7. HYDROCHLOROTHIAZIDE [Concomitant]
     Indication: SWELLING
     Dosage: 0.5 DF, AT MORNING
     Route: 048
  8. ATORVASTATIN CALCIUM [Concomitant]
     Indication: CARDIAC DISORDER
     Dosage: 1 DF, DAILY
     Route: 048

REACTIONS (1)
  - Deafness [Recovered/Resolved]
